FAERS Safety Report 25219816 (Version 1)
Quarter: 2025Q2

REPORT INFORMATION
  Report Type: Spontaneous
  Country: PK (occurrence: None)
  Receive Date: 20250418
  Receipt Date: 20250418
  Transmission Date: 20250717
  Serious: Yes (Hospitalization)
  Sender: FDA-CTU
  Company Number: None

PATIENT
  Age: 25 Year
  Sex: Male
  Weight: 63 kg

DRUGS (3)
  1. CEFUROXIME AXETIL [Suspect]
     Active Substance: CEFUROXIME AXETIL
     Dates: start: 20250419, end: 20250419
  2. NAPROXEN SODIUM [Suspect]
     Active Substance: NAPROXEN SODIUM
  3. digexa syrum [Concomitant]

REACTIONS (1)
  - Drug hypersensitivity [None]
